FAERS Safety Report 8252388-1 (Version None)
Quarter: 2012Q2

REPORT INFORMATION
  Report Type: 
  Country: None (occurrence: None)
  Receive Date: 20120402
  Receipt Date: 20110623
  Transmission Date: 20120825
  Serious: No
  Sender: FDA-Public Use
  Company Number: US-ABBOTT-11P-163-0834410-00

PATIENT
  Age: 47 Year
  Sex: Male
  Weight: 93.524 kg

DRUGS (5)
  1. UNKNOWN MEDICATION [Concomitant]
     Indication: BLOOD CHOLESTEROL
  2. ANDROGEL [Suspect]
     Dates: start: 20110616
  3. UNKNOWN MEDICATION [Concomitant]
     Indication: HYPERTENSION
  4. ANDROGEL [Suspect]
     Indication: BLOOD TESTOSTERONE DECREASED
     Dosage: PACKETS
     Dates: start: 20110523, end: 20110616
  5. METFORMIN HCL [Concomitant]
     Indication: DIABETES MELLITUS

REACTIONS (4)
  - ASTHENIA [None]
  - FEELING ABNORMAL [None]
  - FATIGUE [None]
  - SOMNOLENCE [None]
